FAERS Safety Report 14692634 (Version 7)
Quarter: 2024Q3

REPORT INFORMATION
  Report Type: Report from Study
  Country: CA (occurrence: CA)
  Receive Date: 20180329
  Receipt Date: 20240725
  Transmission Date: 20241017
  Serious: Yes (Other)
  Sender: ROCHE
  Company Number: CA-002147023-PHHY2017CA003906

PATIENT
  Age: 76 Year
  Sex: Female

DRUGS (15)
  1. XOLAIR [Suspect]
     Active Substance: OMALIZUMAB
     Indication: Asthma
     Dosage: 300 MG, EVERY 4 WEEKS
     Route: 058
     Dates: start: 20170105
  2. XOLAIR [Suspect]
     Active Substance: OMALIZUMAB
     Dosage: POWDER AND SOLVENT FOR SOLUTION FOR INJECTION
     Route: 058
     Dates: start: 20170119
  3. XOLAIR [Suspect]
     Active Substance: OMALIZUMAB
     Dosage: POWDER AND SOLVENT FOR SOLUTION FOR INJECTION
     Route: 058
     Dates: start: 20170202
  4. XOLAIR [Suspect]
     Active Substance: OMALIZUMAB
     Route: 058
     Dates: start: 20171228
  5. XOLAIR [Suspect]
     Active Substance: OMALIZUMAB
     Route: 058
     Dates: start: 20180301
  6. XOLAIR [Suspect]
     Active Substance: OMALIZUMAB
     Dosage: 300 MG, BIW
     Route: 058
     Dates: start: 20180320
  7. XOLAIR [Suspect]
     Active Substance: OMALIZUMAB
     Dosage: 300 MG, BIW
     Route: 058
     Dates: start: 20180405
  8. XOLAIR [Suspect]
     Active Substance: OMALIZUMAB
     Dosage: 300 MG, EVERY 4 WEEKS
     Route: 058
     Dates: start: 20180626
  9. XOLAIR [Suspect]
     Active Substance: OMALIZUMAB
     Dosage: 300 MG, EVERY 4 WEEKS
     Route: 058
     Dates: start: 20200128
  10. XOLAIR [Suspect]
     Active Substance: OMALIZUMAB
     Dosage: 300 MG, EVERY 4 WEEKS
     Route: 058
  11. XOLAIR [Suspect]
     Active Substance: OMALIZUMAB
     Route: 058
  12. ZENHALE [Concomitant]
     Active Substance: FORMOTEROL FUMARATE\MOMETASONE FUROATE
     Indication: Product used for unknown indication
     Route: 065
  13. SPIRIVA [Concomitant]
     Active Substance: TIOTROPIUM BROMIDE MONOHYDRATE
     Indication: Product used for unknown indication
     Route: 065
  14. VENTOLIN [Concomitant]
     Active Substance: ALBUTEROL SULFATE
     Indication: Product used for unknown indication
     Route: 065
  15. VENTOLIN [Concomitant]
     Active Substance: ALBUTEROL SULFATE
     Route: 065

REACTIONS (23)
  - Pharyngeal haemorrhage [Unknown]
  - Blood pressure systolic increased [Unknown]
  - Influenza [Unknown]
  - Malaise [Recovering/Resolving]
  - Pain [Recovering/Resolving]
  - Herpes zoster [Unknown]
  - Skin plaque [Unknown]
  - Skin discolouration [Unknown]
  - Burning sensation [Unknown]
  - Abdominal pain upper [Unknown]
  - Oropharyngeal pain [Recovering/Resolving]
  - Foot deformity [Unknown]
  - Laryngitis [Unknown]
  - Dyspnoea [Unknown]
  - Headache [Unknown]
  - Cough [Unknown]
  - Nasopharyngitis [Unknown]
  - Rhinorrhoea [Unknown]
  - Dyspepsia [Unknown]
  - Bronchitis [Unknown]
  - Aphonia [Not Recovered/Not Resolved]
  - Dysphonia [Not Recovered/Not Resolved]
  - Erythema [Unknown]

NARRATIVE: CASE EVENT DATE: 20170105
